FAERS Safety Report 5746975-X (Version None)
Quarter: 2008Q2

REPORT INFORMATION
  Report Type: 
  Country: None (occurrence: None)
  Receive Date: 20080522
  Receipt Date: 20080514
  Transmission Date: 20081010
  Serious: Yes (Other)
  Sender: FDA-Public Use
  Company Number: US-PFIZER INC-2008041893

PATIENT
  Sex: Male
  Weight: 86.363 kg

DRUGS (4)
  1. VIAGRA [Suspect]
     Indication: ERECTILE DYSFUNCTION
     Dates: start: 20080401, end: 20080511
  2. VITAMIN CAP [Concomitant]
  3. CLARITIN [Concomitant]
     Indication: HYPERSENSITIVITY
  4. CHLOR-TRIMETON [Concomitant]
     Indication: HYPERSENSITIVITY

REACTIONS (2)
  - ERECTION INCREASED [None]
  - PENIS DISORDER [None]
